FAERS Safety Report 4641498-3 (Version None)
Quarter: 2005Q2

REPORT INFORMATION
  Report Type: 
  Country: None (occurrence: None)
  Receive Date: 20050421
  Receipt Date: 20050201
  Transmission Date: 20051028
  Serious: Yes (Disabling)
  Sender: FDA-Public Use
  Company Number: NL-GLAXOSMITHKLINE-B0370764A

PATIENT
  Sex: Male

DRUGS (1)
  1. ZYBAN [Suspect]
     Indication: SMOKING CESSATION THERAPY
     Dosage: 150MG UNKNOWN
     Route: 065
     Dates: start: 20041201, end: 20050120

REACTIONS (4)
  - PRURITUS [None]
  - SLEEP DISORDER [None]
  - TOOTH DISORDER [None]
  - TOOTHACHE [None]
